FAERS Safety Report 23836221 (Version 1)
Quarter: 2024Q2

REPORT INFORMATION
  Report Type: Other
  Country: CN (occurrence: CN)
  Receive Date: 20240509
  Receipt Date: 20240509
  Transmission Date: 20240716
  Serious: Yes (Other)
  Sender: FDA-Public Use
  Company Number: CN-GE HEALTHCARE-2024CSU004729

PATIENT
  Age: 57 Year
  Sex: Male
  Weight: 42 kg

DRUGS (1)
  1. VISIPAQUE [Suspect]
     Active Substance: IODIXANOL
     Indication: Angiogram
     Dosage: 110 ML, TOTAL
     Route: 013
     Dates: start: 20240429, end: 20240429

REACTIONS (3)
  - Delirium [Recovering/Resolving]
  - Depressed level of consciousness [Recovering/Resolving]
  - Disorganised speech [Recovering/Resolving]

NARRATIVE: CASE EVENT DATE: 20240429
